FAERS Safety Report 19172067 (Version 4)
Quarter: 2021Q2

REPORT INFORMATION
  Report Type: Spontaneous
  Country: CA (occurrence: CA)
  Receive Date: 20210423
  Receipt Date: 20210625
  Transmission Date: 20210717
  Serious: Yes (Other)
  Sender: FDA-Public Use
  Company Number: CA-CELLTRION INC.-2021CA000483

PATIENT

DRUGS (7)
  1. INFLECTRA [Suspect]
     Active Substance: INFLIXIMAB-DYYB
     Dosage: 375 MG EVERY 8 WEEKS Q 6 WEEK DOSE
     Route: 042
     Dates: start: 20210111, end: 20210111
  2. INFLECTRA [Suspect]
     Active Substance: INFLIXIMAB-DYYB
     Dosage: 375 MG EVERY 8 WEEKS Q 2 WEEK DOSE
     Route: 042
     Dates: start: 20201214, end: 20201214
  3. ASACOL [Concomitant]
     Active Substance: MESALAMINE
     Dosage: 1600 MG, 2X/DAY
  4. PREDNISONE. [Concomitant]
     Active Substance: PREDNISONE
     Dosage: 20 MG, 2X/DAY
  5. MESALAMINE. [Concomitant]
     Active Substance: MESALAMINE
     Dosage: UNK
  6. INFLECTRA [Suspect]
     Active Substance: INFLIXIMAB-DYYB
     Indication: COLITIS ULCERATIVE
     Dosage: 375 MG EVERY 8 WEEKS Q 0 WEEK DOSE
     Route: 042
     Dates: start: 20201130, end: 20201130
  7. INFLECTRA [Suspect]
     Active Substance: INFLIXIMAB-DYYB
     Dosage: 375 MG EVERY 8 WEEKS
     Route: 042
     Dates: start: 20210315, end: 20210315

REACTIONS (4)
  - Infection [Unknown]
  - Bladder cancer [Unknown]
  - Tremor [Unknown]
  - Poor venous access [Unknown]

NARRATIVE: CASE EVENT DATE: 202012
